FAERS Safety Report 7368927-9 (Version None)
Quarter: 2011Q1

REPORT INFORMATION
  Report Type: 
  Country: None (occurrence: None)
  Receive Date: 20110323
  Receipt Date: 20110316
  Transmission Date: 20110831
  Serious: Yes (Other)
  Sender: FDA-Public Use
  Company Number: US-BAXTER-2010BH008216

PATIENT
  Age: 63 Year
  Sex: Female
  Weight: 87 kg

DRUGS (8)
  1. PLAVIX [Concomitant]
     Indication: PRODUCT USED FOR UNKNOWN INDICATION
     Route: 065
  2. WARFARIN SODIUM [Concomitant]
     Indication: PRODUCT USED FOR UNKNOWN INDICATION
     Route: 065
  3. HEPARIN SYRINGE 5000 UNITS/0.5 ML [Suspect]
     Route: 058
     Dates: start: 20080401, end: 20080401
  4. HEPARIN SODIUM 5,000 UNITS IN DEXTROSE 5% [Suspect]
     Indication: DEEP VEIN THROMBOSIS
     Route: 042
     Dates: start: 20080403, end: 20080407
  5. HEPARIN SODIUM 5,000 UNITS IN DEXTROSE 5% [Suspect]
     Indication: PULMONARY EMBOLISM
     Route: 042
     Dates: start: 20080403, end: 20080407
  6. ARGATROBAN [Concomitant]
     Indication: PRODUCT USED FOR UNKNOWN INDICATION
     Route: 065
  7. CORTICOSTEROIDS [Concomitant]
     Indication: PRODUCT USED FOR UNKNOWN INDICATION
     Route: 065
  8. HEPARIN SYRINGE 5000 UNITS/0.5 ML [Suspect]
     Indication: PRODUCT USED FOR UNKNOWN INDICATION
     Route: 058
     Dates: start: 20080326, end: 20080330

REACTIONS (6)
  - HEPARIN-INDUCED THROMBOCYTOPENIA [None]
  - ATRIAL FIBRILLATION [None]
  - WHEEZING [None]
  - DEEP VEIN THROMBOSIS [None]
  - RECTAL HAEMORRHAGE [None]
  - PULMONARY EMBOLISM [None]
